FAERS Safety Report 9060684 (Version 1)
Quarter: 2013Q1

REPORT INFORMATION
  Report Type: Spontaneous
  Country: US (occurrence: US)
  Receive Date: 20130204
  Receipt Date: 20130204
  Transmission Date: 20140127
  Serious: No
  Sender: FDA-Public Use
  Company Number: US-BAYER-2013-009262

PATIENT
  Age: 88 Year
  Sex: Female
  Weight: 50.79 kg

DRUGS (7)
  1. ALEVE CAPLET/TABLET,MIDOL EXTENDED RELIEF CAPLET [Suspect]
     Indication: ARTHRALGIA
     Dosage: 1 DF, BID
     Dates: start: 201301, end: 20130110
  2. B12 [Concomitant]
  3. CENTRUM SILVER [Concomitant]
  4. VITAMIN D [Concomitant]
  5. PROXETINE [Concomitant]
  6. METOPROLOL TARTRATE [Concomitant]
  7. FISH OIL [Concomitant]

REACTIONS (3)
  - Abdominal discomfort [Not Recovered/Not Resolved]
  - Decreased appetite [Not Recovered/Not Resolved]
  - Drug ineffective [None]
